FAERS Safety Report 25766794 (Version 1)
Quarter: 2025Q3

REPORT INFORMATION
  Report Type: Spontaneous
  Country: US (occurrence: None)
  Receive Date: 20250903
  Receipt Date: 20250903
  Transmission Date: 20251020
  Serious: No
  Sender: FDA-CTU
  Company Number: None

PATIENT
  Age: 71 Year
  Sex: Female

DRUGS (2)
  1. RINVOQ [Suspect]
     Active Substance: UPADACITINIB
     Indication: Rheumatoid arthritis
     Dosage: 15 MG DAILY ORAL ?
     Route: 048
     Dates: start: 20250701
  2. RINVOQ [Concomitant]
     Active Substance: UPADACITINIB
     Dates: start: 20250701

REACTIONS (1)
  - Rash [None]

NARRATIVE: CASE EVENT DATE: 20250903
